FAERS Safety Report 9691416 (Version 3)
Quarter: 2014Q1

REPORT INFORMATION
  Report Type: Report from Study
  Country: AU (occurrence: AU)
  Receive Date: 20131115
  Receipt Date: 20140101
  Transmission Date: 20141002
  Serious: Yes (Other)
  Sender: FDA-Public Use
  Company Number: PHHY2013AU130498

PATIENT
  Age: 85 Year
  Sex: Male

DRUGS (1)
  1. ACLASTA [Suspect]
     Dosage: 5 MG, UNK
     Route: 042
     Dates: start: 20121008

REACTIONS (6)
  - Emphysema [Unknown]
  - Macular degeneration [Unknown]
  - Blindness [Unknown]
  - Lower respiratory tract infection [Recovered/Resolved]
  - Tachycardia [Unknown]
  - Heart rate increased [Recovered/Resolved]
